FAERS Safety Report 23536205 (Version 1)
Quarter: 2024Q1

REPORT INFORMATION
  Report Type: Spontaneous
  Country: CA (occurrence: CA)
  Receive Date: 20240219
  Receipt Date: 20240219
  Transmission Date: 20240409
  Serious: Yes (Hospitalization, Other)
  Sender: FDA-Public Use
  Company Number: None

PATIENT
  Age: 48 Year
  Sex: Female
  Weight: 91 kg

DRUGS (1)
  1. OZEMPIC [Suspect]
     Active Substance: SEMAGLUTIDE
     Indication: Obesity
     Dosage: 2 MG, QW
     Route: 058

REACTIONS (3)
  - Femoral neck fracture [Recovering/Resolving]
  - Hepatic enzyme increased [Recovering/Resolving]
  - Product use in unapproved indication [Unknown]
